FAERS Safety Report 12376537 (Version 1)
Quarter: 2016Q2

REPORT INFORMATION
  Report Type: Spontaneous
  Country: US (occurrence: None)
  Receive Date: 20160516
  Receipt Date: 20160516
  Transmission Date: 20160815
  Serious: Yes (Disabling, Other)
  Sender: FDA-Public Use
  Company Number: None

PATIENT
  Age: 63 Year
  Sex: Male
  Weight: 81.65 kg

DRUGS (2)
  1. CIPROFLOXACIN. [Suspect]
     Active Substance: CIPROFLOXACIN
  2. OFLOXACIN. [Suspect]
     Active Substance: OFLOXACIN

REACTIONS (4)
  - Palpitations [None]
  - Enthesopathy [None]
  - Neuralgia [None]
  - Tendonitis [None]

NARRATIVE: CASE EVENT DATE: 20090512
